FAERS Safety Report 9313095 (Version 1)
Quarter: 2013Q2

REPORT INFORMATION
  Report Type: Spontaneous
  Country: US (occurrence: US)
  Receive Date: 20130528
  Receipt Date: 20130528
  Transmission Date: 20140414
  Serious: No
  Sender: FDA-Public Use
  Company Number: US-ABBOTT-13P-163-1077934-00

PATIENT
  Age: 70 Year
  Sex: Male
  Weight: 109.87 kg

DRUGS (6)
  1. ANDROGEL [Suspect]
     Indication: BLOOD TESTOSTERONE DECREASED
     Dates: start: 201302
  2. LISINOPRIL [Concomitant]
     Indication: HYPERTENSION
  3. SIMVASTATIN [Concomitant]
     Indication: BLOOD CHOLESTEROL INCREASED
  4. SOMA [Concomitant]
     Indication: MUSCLE RELAXANT THERAPY
  5. MORPHINE [Concomitant]
     Indication: PAIN
  6. CALCIUM WITH VITAMIN D [Concomitant]
     Indication: BONE DISORDER

REACTIONS (1)
  - Rash [Recovering/Resolving]
